FAERS Safety Report 11720920 (Version 1)
Quarter: 2015Q4

REPORT INFORMATION
  Report Type: Spontaneous
  Country: US (occurrence: US)
  Receive Date: 20151110
  Receipt Date: 20151110
  Transmission Date: 20160304
  Serious: No
  Sender: FDA-Public Use
  Company Number: US-SA-2015SA142055

PATIENT
  Age: 69 Year
  Sex: Male
  Weight: 86.18 kg

DRUGS (21)
  1. PRALUENT [Suspect]
     Active Substance: ALIROCUMAB
     Indication: HYPERCHOLESTEROLAEMIA
     Route: 065
     Dates: start: 20150824, end: 20150824
  2. ALIROCUMAB PREFILLED PEN [Concomitant]
     Dates: start: 20150824, end: 20150824
  3. LOSARTAN. [Concomitant]
     Active Substance: LOSARTAN
  4. GLYBURIDE. [Concomitant]
     Active Substance: GLYBURIDE
  5. CORTISONE [Concomitant]
     Active Substance: CORTISONE\HYDROCORTISONE
     Indication: PRURITUS
  6. VITAMIN D [Concomitant]
     Active Substance: CHOLECALCIFEROL
     Indication: VITAMIN D DEFICIENCY
  7. VITAMINS NOS [Concomitant]
     Active Substance: VITAMINS
  8. TAMSULOSIN [Concomitant]
     Active Substance: TAMSULOSIN
  9. CARVEDILOL. [Concomitant]
     Active Substance: CARVEDILOL
  10. ACTOS [Concomitant]
     Active Substance: PIOGLITAZONE HYDROCHLORIDE
  11. PLAVIX [Concomitant]
     Active Substance: CLOPIDOGREL BISULFATE
  12. IBUPROFEN. [Concomitant]
     Active Substance: IBUPROFEN
     Indication: PAIN
  13. METFORMIN [Concomitant]
     Active Substance: METFORMIN HYDROCHLORIDE
  14. JANUVIA [Concomitant]
     Active Substance: SITAGLIPTIN PHOSPHATE
  15. CHONDROITIN W/GLUCOSAMINE [Concomitant]
  16. APAP [Concomitant]
     Active Substance: ACETAMINOPHEN
     Indication: PAIN
  17. ZYRTEC [Concomitant]
     Active Substance: CETIRIZINE HYDROCHLORIDE
     Indication: PROPHYLAXIS
  18. FISH OIL [Concomitant]
     Active Substance: FISH OIL
  19. ASA [Concomitant]
     Active Substance: ASPIRIN
  20. COENZYME Q10 [Concomitant]
     Active Substance: UBIDECARENONE
  21. CIALIS [Concomitant]
     Active Substance: TADALAFIL

REACTIONS (12)
  - Glossodynia [Recovered/Resolved]
  - Dry mouth [Recovered/Resolved]
  - Aphonia [Recovered/Resolved]
  - Aptyalism [Recovered/Resolved]
  - Toothache [Recovered/Resolved]
  - Gingival pain [Recovered/Resolved]
  - Drug interaction [Recovered/Resolved]
  - Pain in extremity [Unknown]
  - Influenza like illness [Not Recovered/Not Resolved]
  - Dyspnoea [Not Recovered/Not Resolved]
  - Nasal congestion [Not Recovered/Not Resolved]
  - Oral pain [Recovered/Resolved]

NARRATIVE: CASE EVENT DATE: 201508
